FAERS Safety Report 12724084 (Version 1)
Quarter: 2016Q3

REPORT INFORMATION
  Report Type: Spontaneous
  Country: US (occurrence: US)
  Receive Date: 20160907
  Receipt Date: 20160907
  Transmission Date: 20161109
  Serious: Yes (Other)
  Sender: FDA-Public Use
  Company Number: None

PATIENT
  Age: 39 Year
  Sex: Male
  Weight: 94.5 kg

DRUGS (2)
  1. ONE A DAY MULTI VITAMIN [Concomitant]
  2. ATORVASTATIN 40 MG TABLETS [Suspect]
     Active Substance: ATORVASTATIN
     Indication: BLOOD CHOLESTEROL INCREASED
     Route: 048
     Dates: start: 20160801

REACTIONS (1)
  - Libido decreased [None]

NARRATIVE: CASE EVENT DATE: 20160822
